FAERS Safety Report 5485735-4 (Version None)
Quarter: 2007Q4

REPORT INFORMATION
  Report Type: 
  Country: None (occurrence: None)
  Receive Date: 20071015
  Receipt Date: 20071002
  Transmission Date: 20080405
  Serious: Yes (Other)
  Sender: FDA-Public Use
  Company Number: FR-AMGEN-US177073

PATIENT
  Age: 59 Year
  Sex: Male

DRUGS (5)
  1. ENBREL [Suspect]
     Indication: RHEUMATOID ARTHRITIS
     Route: 058
     Dates: start: 20060216
  2. NOVATREX [Interacting]
     Indication: RHEUMATOID ARTHRITIS
     Dosage: 15 MG TOTAL WEEKLY
     Route: 048
     Dates: start: 20050805, end: 20060331
  3. NOVATREX [Interacting]
     Dosage: 7.5 MG TOTAL WEEKLY
     Route: 048
     Dates: start: 20060401, end: 20060411
  4. CORTANCYL [Concomitant]
     Indication: RHEUMATOID ARTHRITIS
     Dosage: 8 MG TOTAL DAILY
     Route: 048
     Dates: end: 20060422
  5. CORTANCYL [Concomitant]
     Dosage: 20 MG TOTAL DAILY THEN HAD BEEN DECREASED TO 1 MG DAILY AS OF OCT-2007
     Route: 048
     Dates: start: 20060423

REACTIONS (4)
  - DRUG INTERACTION [None]
  - HEPATITIS [None]
  - NEUTROPENIA [None]
  - THROMBOCYTOPENIA [None]
